FAERS Safety Report 7875295-2 (Version None)
Quarter: 2011Q4

REPORT INFORMATION
  Report Type: 
  Country: None (occurrence: None)
  Receive Date: 20111031
  Receipt Date: 20111021
  Transmission Date: 20120403
  Serious: Yes (Death, Other)
  Sender: FDA-Public Use
  Company Number: GB-PFIZER INC-2011254783

PATIENT
  Age: 19 Year
  Sex: Male

DRUGS (3)
  1. PROPOFOL [Suspect]
  2. MORPHINE SULFATE [Suspect]
  3. GABAPENTIN [Suspect]

REACTIONS (4)
  - ENTEROBACTER SEPSIS [None]
  - INTESTINAL INFARCTION [None]
  - RHABDOMYOLYSIS [None]
  - PYREXIA [None]
